FAERS Safety Report 12937388 (Version 1)
Quarter: 2016Q4

REPORT INFORMATION
  Report Type: Spontaneous
  Country: US (occurrence: US)
  Receive Date: 20161114
  Receipt Date: 20161114
  Transmission Date: 20170207
  Serious: No
  Sender: FDA-Public Use
  Company Number: US-GALDERMA-US16004812

PATIENT
  Age: 53 Year
  Sex: Female

DRUGS (1)
  1. CLOBEX [Suspect]
     Active Substance: CLOBETASOL PROPIONATE
     Indication: CUTANEOUS LUPUS ERYTHEMATOSUS
     Route: 061
     Dates: start: 2006

REACTIONS (2)
  - Product use issue [Recovered/Resolved]
  - Inappropriate schedule of drug administration [Recovered/Resolved]
